FAERS Safety Report 7733695-5 (Version None)
Quarter: 2011Q3

REPORT INFORMATION
  Report Type: 
  Country: None (occurrence: None)
  Receive Date: 20110907
  Receipt Date: 20110901
  Transmission Date: 20111222
  Serious: Yes (Other)
  Sender: FDA-Public Use
  Company Number: US-SANOFI-AVENTIS-2011SA057414

PATIENT
  Sex: Male

DRUGS (8)
  1. NEUPOGEN [Concomitant]
     Dates: start: 20101210, end: 20101210
  2. NEUPOGEN [Concomitant]
     Dates: start: 20110204, end: 20110204
  3. JEVTANA KIT [Suspect]
     Route: 041
     Dates: start: 20101210, end: 20101210
  4. JEVTANA KIT [Suspect]
     Route: 041
     Dates: start: 20110204, end: 20110204
  5. JEVTANA KIT [Suspect]
     Indication: PROSTATE CANCER
     Route: 041
     Dates: start: 20101119, end: 20101119
  6. JEVTANA KIT [Suspect]
     Route: 041
     Dates: start: 20110114, end: 20110114
  7. NEUPOGEN [Concomitant]
     Dates: start: 20101119, end: 20101119
  8. NEUPOGEN [Concomitant]
     Dates: start: 20110114, end: 20110114

REACTIONS (1)
  - TOXICITY TO VARIOUS AGENTS [None]
